APPROVED DRUG PRODUCT: GABAPENTIN
Active Ingredient: GABAPENTIN
Strength: 250MG/5ML
Dosage Form/Route: SOLUTION;ORAL
Application: A202024 | Product #001 | TE Code: AA
Applicant: AMNEAL PHARMACEUTICALS
Approved: Mar 23, 2012 | RLD: No | RS: No | Type: RX